FAERS Safety Report 7916426-5 (Version None)
Quarter: 2011Q4

REPORT INFORMATION
  Report Type: 
  Country: None (occurrence: None)
  Receive Date: 20111116
  Receipt Date: 20111107
  Transmission Date: 20120403
  Serious: No
  Sender: FDA-Public Use
  Company Number: US-BIOGENIDEC-2011BI042650

PATIENT
  Age: 50 Year
  Sex: Female

DRUGS (2)
  1. AVONEX [Suspect]
     Indication: MULTIPLE SCLEROSIS
     Route: 030
     Dates: start: 20090716
  2. AVONEX [Suspect]
     Route: 030
     Dates: start: 20050510, end: 20090402

REACTIONS (4)
  - SKIN WARM [None]
  - PALPITATIONS [None]
  - HEART RATE INCREASED [None]
  - GAIT DISTURBANCE [None]
